FAERS Safety Report 23212448 (Version 2)
Quarter: 2023Q4

REPORT INFORMATION
  Report Type: Spontaneous
  Country: US (occurrence: US)
  Receive Date: 20231121
  Receipt Date: 20231128
  Transmission Date: 20240109
  Serious: Yes (Other)
  Sender: FDA-Public Use
  Company Number: US-PFIZER INC-202300378941

PATIENT
  Age: 27 Year
  Sex: Male
  Weight: 39.002 kg

DRUGS (2)
  1. XALKORI [Suspect]
     Active Substance: CRIZOTINIB
     Dosage: UNK
     Dates: start: 202210
  2. OMEPRAZOLE [Suspect]
     Active Substance: OMEPRAZOLE
     Dosage: UNK

REACTIONS (7)
  - Amputation [Unknown]
  - Transient ischaemic attack [Unknown]
  - Second primary malignancy [Unknown]
  - Sarcoma [Unknown]
  - Neoplasm progression [Unknown]
  - Intentional product use issue [Unknown]
  - Product use complaint [Unknown]
